FAERS Safety Report 6938074-6 (Version None)
Quarter: 2010Q3

REPORT INFORMATION
  Report Type: 
  Country: None (occurrence: None)
  Receive Date: 20100824
  Receipt Date: 20100816
  Transmission Date: 20110219
  Serious: Yes (Other)
  Sender: FDA-Public Use
  Company Number: US-BAYER-201031102NA

PATIENT
  Sex: Female

DRUGS (1)
  1. YAZ [Suspect]
     Indication: PRODUCT USED FOR UNKNOWN INDICATION
     Route: 048
     Dates: start: 20090501, end: 20090901

REACTIONS (7)
  - ASTHENIA [None]
  - BACK PAIN [None]
  - CHEST PAIN [None]
  - HEADACHE [None]
  - PRESYNCOPE [None]
  - TACHYCARDIA [None]
  - VERTIGO [None]
